FAERS Safety Report 16742510 (Version 2)
Quarter: 2019Q3

REPORT INFORMATION
  Report Type: Spontaneous
  Country: JP (occurrence: JP)
  Receive Date: 20190826
  Receipt Date: 20190910
  Transmission Date: 20191005
  Serious: Yes (Death, Hospitalization)
  Sender: FDA-Public Use
  Company Number: JP-JNJFOC-20190825335

PATIENT
  Age: 61 Year
  Sex: Female
  Weight: 80.2 kg

DRUGS (8)
  1. XEPLION [Suspect]
     Active Substance: PALIPERIDONE PALMITATE
     Indication: SCHIZOPHRENIA
     Dosage: LEFT DELTOID MUSCLE
     Route: 030
     Dates: start: 20180802, end: 20180802
  2. DIAZEPAM. [Concomitant]
     Active Substance: DIAZEPAM
     Indication: INSOMNIA
     Route: 048
     Dates: start: 20190716, end: 20190819
  3. TASMOLIN [Concomitant]
     Active Substance: BIPERIDEN
     Indication: SCHIZOPHRENIA
     Dosage: 1MG- 2MG ELDERLY SALARIES
     Route: 048
     Dates: start: 20160923, end: 20190116
  4. CRAVIT [Concomitant]
     Active Substance: LEVOFLOXACIN
     Indication: URINARY TRACT INFECTION
     Route: 048
     Dates: start: 20190813, end: 20190819
  5. ESTAZOLAM. [Suspect]
     Active Substance: ESTAZOLAM
     Indication: INSOMNIA
     Dosage: AT BEDTIME
     Route: 048
     Dates: start: 20190124, end: 20190715
  6. TRIAZOLAM. [Suspect]
     Active Substance: TRIAZOLAM
     Indication: INSOMNIA
     Dosage: AT BED TIME
     Route: 048
     Dates: end: 20190715
  7. XEPLION [Suspect]
     Active Substance: PALIPERIDONE PALMITATE
     Dosage: RIGHT DELTOID MUSCLE
     Route: 030
     Dates: start: 20180809, end: 20180809
  8. XEPLION [Suspect]
     Active Substance: PALIPERIDONE PALMITATE
     Dosage: LEFT, RIGHT GLUTEAL MUSCLE
     Route: 030
     Dates: start: 20180906, end: 20190711

REACTIONS (6)
  - Hypoxia [Fatal]
  - Heat illness [Unknown]
  - Cardiac failure [Fatal]
  - Neuroleptic malignant syndrome [Recovered/Resolved]
  - Obesity [Not Recovered/Not Resolved]
  - Hyperventilation [Unknown]

NARRATIVE: CASE EVENT DATE: 20190221
